FAERS Safety Report 4949376-7 (Version None)
Quarter: 2006Q1

REPORT INFORMATION
  Report Type: 
  Country: None (occurrence: None)
  Receive Date: 20060315
  Receipt Date: 20060221
  Transmission Date: 20060701
  Serious: Yes (Hospitalization, Other)
  Sender: FDA-Public Use
  Company Number: US_0410107386

PATIENT
  Sex: Male
  Weight: 68 kg

DRUGS (6)
  1. ZYPREXA [Suspect]
     Indication: BIPOLAR DISORDER
     Dosage: SEE IMAGE
     Route: 048
     Dates: start: 20010801
  2. ZYPREXA [Suspect]
     Indication: BIPOLAR DISORDER
     Dosage: SEE IMAGE
     Route: 048
     Dates: start: 20030901
  3. ARIPIPRAZOLE (ARIPIPRAZOLE) [Concomitant]
  4. RISPERIDONE [Concomitant]
  5. TRAZODONE HCL [Concomitant]
  6. PAROXETINE HCL [Concomitant]

REACTIONS (4)
  - DIABETES MELLITUS [None]
  - HEPATIC FUNCTION ABNORMAL [None]
  - HEPATIC INFECTION [None]
  - PANCREATITIS [None]
